FAERS Safety Report 13042907 (Version 1)
Quarter: 2016Q4

REPORT INFORMATION
  Report Type: Spontaneous
  Country: US (occurrence: US)
  Receive Date: 20161219
  Receipt Date: 20161219
  Transmission Date: 20170207
  Serious: No
  Sender: FDA-Public Use
  Company Number: US-JAZZ-2015-US-001601

PATIENT
  Sex: Male

DRUGS (17)
  1. CALCITRIOL. [Concomitant]
     Active Substance: CALCITRIOL
  2. ISOSORBIDE MN [Concomitant]
     Active Substance: ISOSORBIDE MONONITRATE
  3. PLAVIX [Concomitant]
     Active Substance: CLOPIDOGREL BISULFATE
  4. STARLIX [Concomitant]
     Active Substance: NATEGLINIDE
  5. LYRICA [Concomitant]
     Active Substance: PREGABALIN
  6. XYREM [Suspect]
     Active Substance: SODIUM OXYBATE
     Indication: NARCOLEPSY
     Dosage: 2.25 G, BID
     Route: 048
     Dates: start: 200506, end: 200605
  7. COZAAR [Concomitant]
     Active Substance: LOSARTAN POTASSIUM
  8. VITAMIN D3 [Concomitant]
     Active Substance: CHOLECALCIFEROL
  9. XYREM [Suspect]
     Active Substance: SODIUM OXYBATE
     Dosage: 3 G, BID
     Route: 048
     Dates: start: 200605
  10. CARVEDILOL. [Concomitant]
     Active Substance: CARVEDILOL
  11. FUROSEMIDE. [Concomitant]
     Active Substance: FUROSEMIDE
  12. JANUVIA [Concomitant]
     Active Substance: SITAGLIPTIN PHOSPHATE
  13. SIMVASTATIN. [Concomitant]
     Active Substance: SIMVASTATIN
  14. DONEPEZIL HCL [Concomitant]
     Active Substance: DONEPEZIL HYDROCHLORIDE
  15. ASPIRIN (E.C.) [Concomitant]
     Active Substance: ASPIRIN
  16. LISINOPRIL. [Concomitant]
     Active Substance: LISINOPRIL
  17. VYTORIN [Concomitant]
     Active Substance: EZETIMIBE\SIMVASTATIN

REACTIONS (2)
  - Memory impairment [Not Recovered/Not Resolved]
  - Condition aggravated [Not Recovered/Not Resolved]
